FAERS Safety Report 18349156 (Version 1)
Quarter: 2020Q4

REPORT INFORMATION
  Report Type: Report from Study
  Country: US (occurrence: US)
  Receive Date: 20201006
  Receipt Date: 20201006
  Transmission Date: 20210114
  Serious: Yes (Other)
  Sender: FDA-Public Use
  Company Number: US-MYLANLABS-2020M1084035

PATIENT
  Age: 57 Year
  Sex: Female

DRUGS (4)
  1. MYCOPHENOLATE MOFETIL. [Suspect]
     Active Substance: MYCOPHENOLATE MOFETIL
     Indication: MYASTHENIA GRAVIS
     Dosage: 1000 MILLIGRAM, BID
     Route: 065
  2. IMMUNOGLOBULIN                     /07494701/ [Suspect]
     Active Substance: IMMUNE GLOBULIN NOS
     Indication: MYASTHENIA GRAVIS
     Dosage: 1 G/KG, MONTHLY
     Route: 042
  3. PYRIDOSTIGMINE [Suspect]
     Active Substance: PYRIDOSTIGMINE
     Indication: MYASTHENIA GRAVIS
     Dosage: 60 MILLIGRAM, TID THREE TIMES DAILY
     Route: 065
  4. PREDNISONE. [Suspect]
     Active Substance: PREDNISONE
     Indication: MYASTHENIA GRAVIS
     Dosage: 50 MILLIGRAM, QD
     Route: 065

REACTIONS (1)
  - Drug ineffective [Unknown]
